FAERS Safety Report 9017825 (Version 6)
Quarter: 2014Q1

REPORT INFORMATION
  Report Type: Spontaneous
  Country: US (occurrence: US)
  Receive Date: 20130118
  Receipt Date: 20140304
  Transmission Date: 20141002
  Serious: Yes (Hospitalization)
  Sender: FDA-Public Use
  Company Number: US-BIOGENIDEC-2013BI002168

PATIENT
  Age: 50 Year
  Sex: Female

DRUGS (15)
  1. TYSABRI [Suspect]
     Indication: MULTIPLE SCLEROSIS
     Route: 042
     Dates: start: 20121211, end: 20121211
  2. VITAMIN D [Concomitant]
  3. LYRICA [Concomitant]
     Indication: NEUROPATHY PERIPHERAL
     Route: 048
     Dates: start: 201210, end: 201301
  4. ASPIRIN [Concomitant]
     Route: 048
  5. BACLOFEN [Concomitant]
     Route: 048
  6. COREG [Concomitant]
     Route: 048
  7. CRESTOR [Concomitant]
     Route: 048
  8. CYMBALTA [Concomitant]
     Route: 048
  9. ESTRATEST [Concomitant]
     Route: 048
  10. KLONOPIN [Concomitant]
     Route: 048
  11. LEVOXYL [Concomitant]
     Route: 048
  12. LISINOPRIL [Concomitant]
     Route: 048
  13. NITROSTAT [Concomitant]
     Route: 060
  14. PROPANOLOL [Concomitant]
     Route: 048
  15. SINGULAIR [Concomitant]
     Route: 048

REACTIONS (5)
  - Sciatic nerve injury [Not Recovered/Not Resolved]
  - Intervertebral disc protrusion [Not Recovered/Not Resolved]
  - Back pain [Recovered/Resolved]
  - Sciatica [Recovered/Resolved]
  - Central nervous system lesion [Not Recovered/Not Resolved]
